FAERS Safety Report 8312574-9 (Version None)
Quarter: 2012Q2

REPORT INFORMATION
  Report Type: 
  Country: None (occurrence: None)
  Receive Date: 20120424
  Receipt Date: 20120424
  Transmission Date: 20120825
  Serious: Yes (Disabling)
  Sender: FDA-Public Use
  Company Number: None

PATIENT
  Sex: Female
  Weight: 81.6475 kg

DRUGS (3)
  1. LUNESTA [Suspect]
     Dosage: 1 AT BEDTIME SLEEP
  2. ZOLPIDEM TARTRATE [Suspect]
     Indication: PAIN
     Dosage: 1 AT BEDTIME 30/BOTTLE SLEEP MEDICAL
  3. ZOLPIDEM TARTRATE [Suspect]
     Indication: SLEEP DISORDER
     Dosage: 1 AT BEDTIME 30/BOTTLE SLEEP MEDICAL

REACTIONS (31)
  - VISUAL IMPAIRMENT [None]
  - SINUSITIS [None]
  - BACTERIAL INFECTION [None]
  - DRY MOUTH [None]
  - ASTHENIA [None]
  - FEAR [None]
  - PAIN IN JAW [None]
  - UNEVALUABLE EVENT [None]
  - TREMOR [None]
  - HYPERHIDROSIS [None]
  - HYPERSENSITIVITY [None]
  - FEELING COLD [None]
  - SOMNOLENCE [None]
  - FALL [None]
  - FATIGUE [None]
  - DRUG INEFFECTIVE [None]
  - MACULAR DEGENERATION [None]
  - ANXIETY [None]
  - HEADACHE [None]
  - MIDDLE INSOMNIA [None]
  - ABASIA [None]
  - DYSSTASIA [None]
  - DIARRHOEA [None]
  - VIRAL INFECTION [None]
  - FEELING HOT [None]
  - DIZZINESS [None]
  - HEART RATE IRREGULAR [None]
  - MUSCULAR WEAKNESS [None]
  - GRIP STRENGTH DECREASED [None]
  - NERVOUSNESS [None]
  - GLAUCOMA [None]
